FAERS Safety Report 17347463 (Version 1)
Quarter: 2020Q1

REPORT INFORMATION
  Report Type: Report from Study
  Country: US (occurrence: US)
  Receive Date: 20200129
  Receipt Date: 20200129
  Transmission Date: 20200409
  Serious: No
  Sender: FDA-Public Use
  Company Number: US-EXELIXIS-CABO-19023200

PATIENT
  Sex: Female

DRUGS (1)
  1. CABOMETYX [Suspect]
     Active Substance: CABOZANTINIB S-MALATE
     Indication: RENAL CELL CARCINOMA
     Dosage: 60 MG, QD (AM WITHOUT FOOD)
     Dates: start: 20190726

REACTIONS (7)
  - Localised infection [Recovering/Resolving]
  - Diarrhoea [Recovered/Resolved]
  - Liver function test increased [Recovering/Resolving]
  - Nausea [Recovered/Resolved]
  - Vomiting [Recovered/Resolved]
  - Hyperkeratosis [Recovering/Resolving]
  - Blood pressure increased [Recovered/Resolved]
